FAERS Safety Report 5228807-1 (Version None)
Quarter: 2007Q1

REPORT INFORMATION
  Report Type: 
  Country: None (occurrence: None)
  Receive Date: 20070131
  Receipt Date: 20070129
  Transmission Date: 20070707
  Serious: Yes (Hospitalization)
  Sender: FDA-Public Use
  Company Number: PHHO2004US16249

PATIENT
  Age: 41 Year
  Sex: Female
  Weight: 58 kg

DRUGS (5)
  1. TEGASEROD VS PLACEBO (PLACEBO PLACEBO) UNKNOWN [Suspect]
     Indication: DYSPEPSIA
     Dosage: 6MG
     Dates: start: 20041011, end: 20041113
  2. RIFAMPICIN [Suspect]
     Dates: start: 20041112, end: 20041114
  3. ISONIAZID SANDOZ (NGX) (ISONIAZID, ISONIAZID) UNKNOWN [Suspect]
     Dates: start: 20041112, end: 20041114
  4. ETHAMBUTOL (NGX) (ETHAMBUTOL, ETHAMBUTOL) UNKNOWN [Suspect]
     Dates: start: 20041112, end: 20041114
  5. PYRAZINAMIDE (NGX) (PYRAZINAMIDE, PYRAZINAMIDE) UNKNOWN [Suspect]
     Dates: start: 20041112, end: 20041114

REACTIONS (4)
  - ABDOMINAL PAIN UPPER [None]
  - ANOREXIA [None]
  - DEHYDRATION [None]
  - VOMITING [None]
